FAERS Safety Report 17251541 (Version 2)
Quarter: 2020Q1

REPORT INFORMATION
  Report Type: Spontaneous
  Country: DE (occurrence: DE)
  Receive Date: 20200109
  Receipt Date: 20200327
  Transmission Date: 20200409
  Serious: Yes (Hospitalization, Other)
  Sender: FDA-Public Use
  Company Number: DE-SAMSUNG BIOEPIS-SB-2019-37752

PATIENT
  Age: 36 Year
  Sex: Female
  Weight: 125 kg

DRUGS (4)
  1. ONTRUZANT [Suspect]
     Active Substance: TRASTUZUMAB-DTTB
     Indication: BREAST CANCER METASTATIC
     Dosage: UNKNOWN
     Route: 042
     Dates: start: 201802
  2. DENOSUMAB [Concomitant]
     Active Substance: DENOSUMAB
     Indication: PRODUCT USED FOR UNKNOWN INDICATION
     Route: 058
  3. PERTUZUMAB. [Concomitant]
     Active Substance: PERTUZUMAB
     Indication: PRODUCT USED FOR UNKNOWN INDICATION
     Dosage: UNKNOWN
     Route: 065
  4. PACLITAXEL. [Concomitant]
     Active Substance: PACLITAXEL
     Indication: PRODUCT USED FOR UNKNOWN INDICATION
     Route: 065

REACTIONS (4)
  - Incorrect drug administration rate [Unknown]
  - Cerebral venous thrombosis [Unknown]
  - Metastases to central nervous system [Unknown]
  - Syncope [Recovered/Resolved]

NARRATIVE: CASE EVENT DATE: 20191129
